FAERS Safety Report 21306792 (Version 1)
Quarter: 2022Q3

REPORT INFORMATION
  Report Type: Spontaneous
  Country: US (occurrence: US)
  Receive Date: 20220908
  Receipt Date: 20220908
  Transmission Date: 20221027
  Serious: Yes (Other)
  Sender: FDA-Public Use
  Company Number: US-LUPIN PHARMACEUTICALS INC.-2022-10860

PATIENT
  Sex: Male

DRUGS (31)
  1. CEPHALEXIN [Suspect]
     Active Substance: CEPHALEXIN
     Indication: Hydroa vacciniforme
     Dosage: UNK (TOPICAL AND SYSTEMIC)
     Route: 065
     Dates: start: 2015, end: 201607
  2. CEPHALEXIN [Suspect]
     Active Substance: CEPHALEXIN
     Indication: Lymphoma
  3. SULFAMETHOXAZOLE AND TRIMETHOPRIM [Suspect]
     Active Substance: SULFAMETHOXAZOLE\TRIMETHOPRIM
     Indication: Hydroa vacciniforme
     Dosage: UNK (TOPICAL AND SYSTEMIC)
     Route: 065
     Dates: start: 2015, end: 201607
  4. SULFAMETHOXAZOLE AND TRIMETHOPRIM [Suspect]
     Active Substance: SULFAMETHOXAZOLE\TRIMETHOPRIM
     Indication: Lymphoma
  5. CLINDAMYCIN [Suspect]
     Active Substance: CLINDAMYCIN
     Indication: Hydroa vacciniforme
     Dosage: UNK (TOPICAL AND SYSTEMIC)
     Route: 065
     Dates: start: 2015, end: 201607
  6. CLINDAMYCIN [Suspect]
     Active Substance: CLINDAMYCIN
     Indication: Lymphoma
  7. METHOTREXATE [Concomitant]
     Active Substance: METHOTREXATE
     Indication: Hydroa vacciniforme
     Dosage: 2.5 MG, BID
     Route: 048
     Dates: start: 201505
  8. METHOTREXATE [Concomitant]
     Active Substance: METHOTREXATE
     Indication: Lymphoma
     Dosage: 7.5 MG (ONCE A WEEK)
     Route: 048
     Dates: start: 201607
  9. METHOTREXATE [Concomitant]
     Active Substance: METHOTREXATE
     Dosage: 20 MG (WEEKLY)
     Route: 048
     Dates: end: 201702
  10. METHOTREXATE [Concomitant]
     Active Substance: METHOTREXATE
     Dosage: 7.5 MG (WEEKLY)
     Route: 048
     Dates: start: 201709, end: 2018
  11. METHOTREXATE [Concomitant]
     Active Substance: METHOTREXATE
     Dosage: 15 MG (PER WEEK)
     Route: 048
  12. PREDNISONE [Concomitant]
     Active Substance: PREDNISONE
     Indication: Hydroa vacciniforme
     Dosage: 40 MG, QD (AS A PART OF METHOTREXATE AND PREDNISONE)
     Route: 065
     Dates: end: 201702
  13. PREDNISONE [Concomitant]
     Active Substance: PREDNISONE
     Indication: Lymphoma
     Dosage: UNK (AS A PART OF THALIDOMIDE AND PREDNISONE)
     Route: 065
     Dates: start: 201802, end: 201804
  14. PREDNISONE [Concomitant]
     Active Substance: PREDNISONE
     Dosage: 20 MG, QD
     Route: 065
     Dates: start: 2018, end: 2018
  15. PREDNISONE [Concomitant]
     Active Substance: PREDNISONE
     Dosage: UNK (AS A PART OF CHOEP REGIMEN)
     Route: 065
     Dates: start: 201808
  16. DAPSONE [Concomitant]
     Active Substance: DAPSONE
     Indication: Hydroa vacciniforme
     Dosage: 50 MG, QD
     Route: 065
     Dates: start: 2017, end: 2017
  17. DAPSONE [Concomitant]
     Active Substance: DAPSONE
     Indication: Lymphoma
     Dosage: 150 MG, QD
     Route: 065
     Dates: start: 2017, end: 2017
  18. THALIDOMIDE [Concomitant]
     Active Substance: THALIDOMIDE
     Indication: Hydroa vacciniforme
     Dosage: UNK
     Route: 065
     Dates: start: 201802, end: 201804
  19. THALIDOMIDE [Concomitant]
     Active Substance: THALIDOMIDE
     Indication: Lymphoma
  20. ROMIDEPSIN [Concomitant]
     Active Substance: ROMIDEPSIN
     Indication: Hydroa vacciniforme
     Dosage: UNK
     Route: 065
     Dates: start: 2018, end: 2018
  21. ROMIDEPSIN [Concomitant]
     Active Substance: ROMIDEPSIN
     Indication: Lymphoma
  22. CYCLOPHOSPHAMIDE [Concomitant]
     Active Substance: CYCLOPHOSPHAMIDE
     Indication: Hydroa vacciniforme
     Dosage: UNK (AS A PART OF CHOEP REGIMEN)
     Route: 065
     Dates: start: 201808
  23. CYCLOPHOSPHAMIDE [Concomitant]
     Active Substance: CYCLOPHOSPHAMIDE
     Indication: Lymphoma
  24. DOXORUBICIN [Concomitant]
     Active Substance: DOXORUBICIN
     Indication: Hydroa vacciniforme
     Dosage: UNK (AS A PART OF CHOEP REGIMEN)
     Route: 065
     Dates: start: 201808
  25. DOXORUBICIN [Concomitant]
     Active Substance: DOXORUBICIN
     Indication: Lymphoma
  26. ETOPOSIDE [Concomitant]
     Active Substance: ETOPOSIDE
     Indication: Hydroa vacciniforme
     Dosage: UNK (AS A PART OF CHOEP REGIMEN)
     Route: 065
     Dates: start: 201808
  27. ETOPOSIDE [Concomitant]
     Active Substance: ETOPOSIDE
     Indication: Lymphoma
  28. VINCRISTINE [Concomitant]
     Active Substance: VINCRISTINE
     Indication: Hydroa vacciniforme
     Dosage: UNK (AS A PART OF CHOEP REGIMEN)
     Route: 065
     Dates: start: 201808
  29. VINCRISTINE [Concomitant]
     Active Substance: VINCRISTINE
     Indication: Lymphoma
  30. MYCOPHENOLATE MOFETIL [Concomitant]
     Active Substance: MYCOPHENOLATE MOFETIL
     Indication: Hydroa vacciniforme
     Dosage: 500 MG
     Route: 065
     Dates: start: 2017, end: 2017
  31. MYCOPHENOLATE MOFETIL [Concomitant]
     Active Substance: MYCOPHENOLATE MOFETIL
     Indication: Lymphoma

REACTIONS (2)
  - Drug ineffective for unapproved indication [Unknown]
  - Off label use [Unknown]
